FAERS Safety Report 10003609 (Version 2)
Quarter: 2014Q1

REPORT INFORMATION
  Report Type: Spontaneous
  Country: IN (occurrence: IN)
  Receive Date: 20140312
  Receipt Date: 20140321
  Transmission Date: 20141002
  Serious: Yes (Death, Other)
  Sender: FDA-Public Use
  Company Number: PHHY2014IN029800

PATIENT
  Age: 23 Year
  Sex: Male
  Weight: 75 kg

DRUGS (4)
  1. VOVERAN [Suspect]
     Indication: PYREXIA
     Dosage: 75 MG, UNK
     Route: 030
  2. VOVERAN [Suspect]
     Indication: PAIN
  3. OMEPRAZOLE [Concomitant]
     Dosage: UNK UKN, UNK
     Route: 048
  4. PENCILLIN [Concomitant]
     Dosage: UNK UKN, UNK
     Route: 042

REACTIONS (3)
  - Acute respiratory distress syndrome [Fatal]
  - Multi-organ failure [Fatal]
  - General physical health deterioration [Unknown]
